FAERS Safety Report 6052906-8 (Version None)
Quarter: 2009Q1

REPORT INFORMATION
  Report Type: 
  Country: None (occurrence: None)
  Receive Date: 20090127
  Receipt Date: 20080916
  Transmission Date: 20090719
  Serious: No
  Sender: FDA-Public Use
  Company Number: US-ABBOTT-08P-163-0476406-00

PATIENT
  Sex: Male
  Weight: 90.8 kg

DRUGS (5)
  1. LUPRON DEPOT [Suspect]
     Indication: PROSTATE CANCER
     Route: 030
     Dates: start: 20070801, end: 20080612
  2. LUPRON DEPOT [Suspect]
     Route: 030
     Dates: start: 20070601, end: 20070801
  3. BICALUTAMIDE [Concomitant]
     Indication: PROSTATE CANCER
     Route: 048
     Dates: start: 20070601
  4. TERAZOSIN HYDROCHLORIDE [Concomitant]
     Indication: BENIGN PROSTATIC HYPERPLASIA
     Route: 048
  5. TERAZOSIN HYDROCHLORIDE [Concomitant]
     Indication: MICTURITION DISORDER

REACTIONS (9)
  - ALOPECIA [None]
  - HEPATIC ENZYME INCREASED [None]
  - INJECTION SITE INFECTION [None]
  - INSOMNIA [None]
  - LIBIDO DECREASED [None]
  - LIMB INJURY [None]
  - MUSCULOSKELETAL STIFFNESS [None]
  - PAIN IN EXTREMITY [None]
  - TESTICULAR ATROPHY [None]
